FAERS Safety Report 23075672 (Version 2)
Quarter: 2023Q4

REPORT INFORMATION
  Report Type: Spontaneous
  Country: BR (occurrence: BR)
  Receive Date: 20231017
  Receipt Date: 20231030
  Transmission Date: 20240110
  Serious: Yes (Other)
  Sender: FDA-Public Use
  Company Number: BR-009507513-2310BRA003651

PATIENT
  Age: 79 Year
  Sex: Male

DRUGS (6)
  1. PEMBROLIZUMAB [Suspect]
     Active Substance: PEMBROLIZUMAB
     Indication: HER2 protein overexpression
     Dosage: UNK UNK, EVERY 6 WEEKS
     Dates: start: 20230531
  2. PEMBROLIZUMAB [Suspect]
     Active Substance: PEMBROLIZUMAB
     Indication: Gastrointestinal adenocarcinoma
     Dosage: MAINTENANCE TREATMENT, EVERY 6 WEEKS
     Dates: start: 2023
  3. FLUOROURACIL\LEUCOVORIN CALCIUM\OXALIPLATIN [Suspect]
     Active Substance: FLUOROURACIL\LEUCOVORIN CALCIUM\OXALIPLATIN
     Indication: HER2 protein overexpression
     Dosage: UNK UNK, QOW
     Dates: start: 20230531
  4. FLUOROURACIL\LEUCOVORIN CALCIUM\OXALIPLATIN [Suspect]
     Active Substance: FLUOROURACIL\LEUCOVORIN CALCIUM\OXALIPLATIN
     Indication: Gastrointestinal adenocarcinoma
  5. TRASTUZUMAB [Suspect]
     Active Substance: TRASTUZUMAB
     Indication: HER2 protein overexpression
     Dosage: UNK UNK, QOW
     Dates: start: 20230531
  6. TRASTUZUMAB [Suspect]
     Active Substance: TRASTUZUMAB
     Indication: Gastrointestinal adenocarcinoma
     Dosage: MAINTENANCE TREATMENT, Q3W
     Dates: start: 2023

REACTIONS (3)
  - Neuropathy peripheral [Unknown]
  - Mucosal inflammation [Unknown]
  - Product use in unapproved indication [Unknown]

NARRATIVE: CASE EVENT DATE: 20230101
